FAERS Safety Report 23996642 (Version 1)
Quarter: 2024Q2

REPORT INFORMATION
  Report Type: Spontaneous
  Country: CH (occurrence: CH)
  Receive Date: 20240620
  Receipt Date: 20240620
  Transmission Date: 20240716
  Serious: Yes (Other)
  Sender: FDA-Public Use
  Company Number: CH-PFIZER INC-202400193004

PATIENT

DRUGS (1)
  1. METHOTREXATE SODIUM [Suspect]
     Active Substance: METHOTREXATE SODIUM
     Dosage: UNK, DAILY

REACTIONS (7)
  - Overdose [Unknown]
  - Stomatitis [Unknown]
  - Gingivitis [Unknown]
  - Rash [Unknown]
  - Vomiting [Unknown]
  - Pancytopenia [Unknown]
  - Toxicity to various agents [Unknown]
